FAERS Safety Report 20410330 (Version 2)
Quarter: 2022Q1

REPORT INFORMATION
  Report Type: Spontaneous
  Country: US (occurrence: US)
  Receive Date: 20220201
  Receipt Date: 20220225
  Transmission Date: 20220424
  Serious: Yes (Death, Hospitalization, Other)
  Sender: FDA-Public Use
  Company Number: US-CIPLA LTD.-2022US00400

PATIENT

DRUGS (11)
  1. CYCLOPHOSPHAMIDE [Suspect]
     Active Substance: CYCLOPHOSPHAMIDE
     Indication: Pulmonary fibrosis
     Dosage: UNK, DOSE 1 ON DAY12
     Route: 065
     Dates: start: 2021, end: 2021
  2. CYCLOPHOSPHAMIDE [Suspect]
     Active Substance: CYCLOPHOSPHAMIDE
     Indication: Pulmonary alveolar haemorrhage
     Dosage: UNK, DOSE 2 ON DAY 27
     Route: 065
     Dates: start: 2021, end: 2021
  3. METHYLPREDNISOLONE [Suspect]
     Active Substance: METHYLPREDNISOLONE
     Indication: Hypoxia
     Dosage: 60 MILLIGRAM, QID (ON DAY2)
     Route: 042
     Dates: start: 2021
  4. METHYLPREDNISOLONE [Suspect]
     Active Substance: METHYLPREDNISOLONE
     Dosage: 240 MILLIGRAM, QID (ON DAY3)
     Route: 042
     Dates: start: 2021
  5. METHYLPREDNISOLONE [Suspect]
     Active Substance: METHYLPREDNISOLONE
     Dosage: UNK, VARYING DOSES THROUGH DAY 39
     Route: 042
     Dates: start: 2021, end: 2021
  6. OXYGEN [Concomitant]
     Active Substance: OXYGEN
     Indication: Oxygen therapy
     Dosage: UNK
     Route: 065
     Dates: start: 2021
  7. OXYGEN [Concomitant]
     Active Substance: OXYGEN
     Dosage: 30 LITER, PER MIN
     Route: 045
     Dates: start: 2021
  8. PIPERACILLIN AND TAZOBACTAM [Concomitant]
     Active Substance: PIPERACILLIN SODIUM\TAZOBACTAM SODIUM
     Indication: Pneumonia bacterial
     Dosage: UNK
     Route: 065
     Dates: start: 2021, end: 2021
  9. VANCOMYCIN [Concomitant]
     Active Substance: VANCOMYCIN
     Indication: Bacterial infection
     Dosage: UNK
     Route: 065
     Dates: start: 2021, end: 2021
  10. CEFEPIME [Concomitant]
     Active Substance: CEFEPIME HYDROCHLORIDE
     Indication: Bacterial infection
     Dosage: UNK
     Route: 065
     Dates: start: 2021, end: 2021
  11. CEFEPIME [Concomitant]
     Active Substance: CEFEPIME HYDROCHLORIDE
     Dosage: UNK
     Route: 042
     Dates: start: 2021, end: 2021

REACTIONS (10)
  - Death [Fatal]
  - Leukopenia [Recovering/Resolving]
  - Cryptococcosis [Recovering/Resolving]
  - Bronchopulmonary aspergillosis [Recovering/Resolving]
  - Hypoxia [Unknown]
  - Septic shock [Unknown]
  - Pneumonia [Unknown]
  - Enterobacter infection [Unknown]
  - Acute kidney injury [Unknown]
  - Shock [Unknown]

NARRATIVE: CASE EVENT DATE: 20210101
